FAERS Safety Report 4332446-4 (Version None)
Quarter: 2004Q2

REPORT INFORMATION
  Report Type: 
  Country: None (occurrence: None)
  Receive Date: 20040401
  Receipt Date: 20040317
  Transmission Date: 20050107
  Serious: Yes (Hospitalization, Other)
  Sender: FDA-Public Use
  Company Number: 2004-BP-01611AU

PATIENT
  Age: 82 Year
  Sex: Male

DRUGS (6)
  1. SPIRIVA [Suspect]
     Indication: CHRONIC OBSTRUCTIVE AIRWAYS DISEASE
     Dosage: 18 MCG (18 MCG, 1 CAPSULE INHALED DAILY)
     Route: 055
  2. SEREVENT [Suspect]
     Indication: CHRONIC OBSTRUCTIVE AIRWAYS DISEASE
     Dosage: 100 MCG (25 MCG, 2 PUFFS TWICE DAILY)
     Route: 055
  3. FLIXOTIDE (FLUTICASONE) [Suspect]
     Indication: ASTHMA
     Dosage: 1000 MCG (250 MCG, 2 PUFFS TWICE DAILY)
     Route: 055
  4. FLIXOTIDE (FLUTICASONE) [Suspect]
     Indication: CHRONIC OBSTRUCTIVE AIRWAYS DISEASE
     Dosage: 1000 MCG (250 MCG, 2 PUFFS TWICE DAILY)
     Route: 055
  5. WARFARIN SODIUM [Concomitant]
  6. LANSOPRAZOLE [Concomitant]

REACTIONS (1)
  - ATRIAL FIBRILLATION [None]
